FAERS Safety Report 8813403 (Version 1)
Quarter: 2012Q4

REPORT INFORMATION
  Report Type: 
  Country: US (occurrence: US)
  Receive Date: 20120927
  Receipt Date: 20120927
  Transmission Date: 20130627
  Serious: No
  Sender: FDA-Public Use
  Company Number: US-AMGEN-USASP2012047316

PATIENT
  Age: 80 Year
  Sex: Female
  Weight: 51.25 kg

DRUGS (7)
  1. PROLIA [Suspect]
     Indication: OSTEOPOROSIS POSTMENOPAUSAL
     Dosage: 60 mg, q6mo
     Route: 058
     Dates: start: 20110525, end: 20120223
  2. VITAMIN D [Concomitant]
     Indication: OSTEOPOROSIS
     Dosage: UNK
  3. VITAMINS [Concomitant]
     Dosage: UNK
  4. CALCIUM [Concomitant]
     Indication: OSTEOPOROSIS
     Dosage: UNK
  5. TYLENOL [Concomitant]
     Indication: PAIN
     Dosage: UNK
  6. BABY ASPIRIN [Concomitant]
     Indication: CARDIAC DISORDER
     Dosage: UNK
  7. RANITIDINE [Concomitant]
     Indication: GASTROOESOPHAGEAL REFLUX DISEASE
     Dosage: UNK

REACTIONS (8)
  - Muscle spasms [Recovering/Resolving]
  - Abdominal distension [Recovering/Resolving]
  - Rash macular [Recovering/Resolving]
  - Pigmentation disorder [Not Recovered/Not Resolved]
  - Weight increased [Not Recovered/Not Resolved]
  - Sensation of heaviness [Not Recovered/Not Resolved]
  - Constipation [Not Recovered/Not Resolved]
  - Eczema [Recovering/Resolving]
